FAERS Safety Report 8176355-1 (Version None)
Quarter: 2012Q1

REPORT INFORMATION
  Report Type: 
  Country: None (occurrence: None)
  Receive Date: 20120117
  Receipt Date: 20110510
  Transmission Date: 20120608
  Serious: Yes (Hospitalization)
  Sender: FDA-Public Use
  Company Number: FK201100947

PATIENT
  Age: 5 Year
  Sex: Male
  Weight: 22.2 kg

DRUGS (4)
  1. ONDANSETRON [Concomitant]
  2. PROPOFOL [Suspect]
     Indication: INDUCTION AND MAINTENANCE OF ANAESTHESIA
     Dosage: 30 MG, X6, INTRAVENOUS BOLUS 40 MG, X2, INTRAVENOUS BOLUS
     Route: 040
     Dates: start: 20110407, end: 20110407
  3. PROPOFOL [Suspect]
     Indication: INDUCTION AND MAINTENANCE OF ANAESTHESIA
     Dosage: 30 MG, X6, INTRAVENOUS BOLUS 40 MG, X2, INTRAVENOUS BOLUS
     Route: 040
     Dates: start: 20110407, end: 20110407
  4. METHOTREXATE [Concomitant]

REACTIONS (2)
  - DRUG INEFFECTIVE [None]
  - BLOOD PRESSURE DECREASED [None]
